FAERS Safety Report 8225177-1 (Version None)
Quarter: 2012Q1

REPORT INFORMATION
  Report Type: 
  Country: None (occurrence: None)
  Receive Date: 20120321
  Receipt Date: 20120314
  Transmission Date: 20120608
  Serious: Yes (Other)
  Sender: FDA-Public Use
  Company Number: US-ALEXION PHARMACEUTICALS INC.-A201101739

PATIENT
  Sex: Female

DRUGS (1)
  1. SOLIRIS [Suspect]
     Indication: PAROXYSMAL NOCTURNAL HAEMOGLOBINURIA
     Dosage: UNK
     Route: 042

REACTIONS (7)
  - DECREASED APPETITE [None]
  - PANCREATIC CYST [None]
  - TUMOUR MARKER INCREASED [None]
  - PLATELET COUNT DECREASED [None]
  - ABDOMINAL DISCOMFORT [None]
  - DIARRHOEA [None]
  - WEIGHT DECREASED [None]
